FAERS Safety Report 7426129-1 (Version None)
Quarter: 2011Q2

REPORT INFORMATION
  Report Type: 
  Country: None (occurrence: None)
  Receive Date: 20110420
  Receipt Date: 20110408
  Transmission Date: 20111010
  Serious: Yes (Other)
  Sender: FDA-Public Use
  Company Number: PHHY2011DE12703

PATIENT
  Sex: Male
  Weight: 62 kg

DRUGS (8)
  1. URBASON                                 /GFR/ [Concomitant]
     Indication: RENAL TRANSPLANT
     Dosage: 2 MG, DAILY
     Route: 048
  2. ALLOPURINOL [Concomitant]
     Indication: HYPERURICAEMIA
     Dosage: 100 MG, DAILY
     Route: 048
  3. CELLCEPT [Concomitant]
     Indication: RENAL TRANSPLANT
     Dosage: 2000 MG, DAILY
     Route: 048
  4. GLEEVEC [Suspect]
     Indication: CHRONIC MYELOID LEUKAEMIA
     Dosage: 400 MG, DAILY
     Route: 048
     Dates: start: 20101201
  5. GLEEVEC [Suspect]
     Dosage: 300 MG, QD
     Route: 048
  6. METOPROLOL SUCCINATE [Concomitant]
     Indication: HYPERTENSION
     Dosage: 50 MG, DAILY
     Route: 048
  7. PANTOZOL [Concomitant]
     Indication: GASTRITIS
     Dosage: 20 MG, DAILY
     Route: 048
  8. INEGY [Concomitant]
     Indication: LIPID METABOLISM DISORDER
     Dosage: 10 MG, DAILY
     Route: 048

REACTIONS (1)
  - LIPASE INCREASED [None]
